FAERS Safety Report 4936066-X (Version None)
Quarter: 2006Q1

REPORT INFORMATION
  Report Type: 
  Country: None (occurrence: None)
  Receive Date: 20060307
  Receipt Date: 20050926
  Transmission Date: 20060701
  Serious: No
  Sender: FDA-Public Use
  Company Number: US-GLAXOSMITHKLINE-A0575898A

PATIENT
  Sex: Male

DRUGS (13)
  1. REQUIP [Suspect]
     Indication: RESTLESS LEGS SYNDROME
     Route: 048
     Dates: start: 20050901
  2. BENAZAPRIL [Concomitant]
  3. TRIAMTERENE AND HYDROCHLOROTHIAZIDE [Concomitant]
  4. FLOMAX [Concomitant]
  5. GABAPENTIN [Concomitant]
  6. UROCIT-K [Concomitant]
  7. CARBIDOPA AND LEVODOPA [Concomitant]
  8. MIRAPEX [Concomitant]
  9. AMITRIPTYLINE HCL [Concomitant]
  10. ASPIRIN [Concomitant]
  11. ONE-A-DAY VITAMIN [Concomitant]
  12. FOLIC ACID [Concomitant]
  13. PRILOSEC [Concomitant]

REACTIONS (2)
  - FEELING ABNORMAL [None]
  - INSOMNIA [None]
